FAERS Safety Report 19767325 (Version 3)
Quarter: 2021Q4

REPORT INFORMATION
  Report Type: Report from Study
  Country: CN (occurrence: CN)
  Receive Date: 20210830
  Receipt Date: 20211005
  Transmission Date: 20220303
  Serious: Yes (Hospitalization)
  Sender: FDA-Public Use
  Company Number: CN-PFIZER INC-202101084073

PATIENT
  Age: 53 Year
  Sex: Male
  Weight: 85 kg

DRUGS (20)
  1. PACLITAXEL [Suspect]
     Active Substance: PACLITAXEL
     Indication: Lung squamous cell carcinoma stage IV
     Dosage: 354.6 MG, EVERY 3 WEEKS
     Route: 041
     Dates: start: 20210709, end: 20210709
  2. PACLITAXEL [Suspect]
     Active Substance: PACLITAXEL
     Dosage: 354.6 MG, EVERY 3 WEEKS
     Route: 041
     Dates: start: 20210731, end: 20210731
  3. CARBOPLATIN [Suspect]
     Active Substance: CARBOPLATIN
     Indication: Lung squamous cell carcinoma stage IV
     Dosage: 750 MG, EVERY 3 WEEKS, BOBEI
     Route: 041
     Dates: start: 20210709, end: 20210709
  4. CARBOPLATIN [Suspect]
     Active Substance: CARBOPLATIN
     Dosage: 750 MG, EVERY 3 WEEKS, BOBEI
     Route: 041
     Dates: start: 20210731, end: 20210731
  5. INVESTIGATIONAL PRODUCT [Suspect]
     Active Substance: INVESTIGATIONAL PRODUCT
     Indication: Lung squamous cell carcinoma stage IV
     Dosage: UNK, EVERY 3 WEEKS
     Route: 041
     Dates: start: 20210708, end: 20210708
  6. INVESTIGATIONAL PRODUCT [Suspect]
     Active Substance: INVESTIGATIONAL PRODUCT
     Dosage: UNK
     Dates: start: 20210730, end: 20210730
  7. ACETAMINOPHEN [Concomitant]
     Active Substance: ACETAMINOPHEN
     Dosage: 0.5 G, 1X/DAY (QD)
     Route: 048
     Dates: start: 20210802, end: 20210809
  8. CIMETIDINE [Concomitant]
     Active Substance: CIMETIDINE
     Indication: Prophylaxis of nausea and vomiting
     Dosage: 0.3 G, IMMEDIATELY
     Route: 041
     Dates: start: 20210731, end: 20210731
  9. CIMETIDINE [Concomitant]
     Active Substance: CIMETIDINE
     Indication: Gastrointestinal disorder prophylaxis
     Dosage: 0.4 G, IMMEDIATELY
     Route: 041
     Dates: start: 20210814, end: 20210819
  10. VITAMIN C [Concomitant]
     Active Substance: ASCORBIC ACID
     Indication: Vitamin supplementation
     Dosage: 3 G, 1X/DAY
     Route: 041
     Dates: start: 20210730, end: 20210802
  11. VITAMIN C [Concomitant]
     Active Substance: ASCORBIC ACID
     Dosage: 3 G, 1X/DAY
     Route: 041
     Dates: start: 20210814, end: 20210819
  12. VITAMIN B6 [Concomitant]
     Active Substance: PYRIDOXINE HYDROCHLORIDE
     Indication: Vitamin supplementation
     Dosage: 0.3 G, 1X/DAY
     Route: 041
     Dates: start: 20210730, end: 20210802
  13. VITAMIN B6 [Concomitant]
     Active Substance: PYRIDOXINE HYDROCHLORIDE
     Dosage: 0.3 G, 1X/DAY
     Route: 041
     Dates: start: 20210814, end: 20210819
  14. PROMETHAZINE HYDROCHLORIDE [Concomitant]
     Active Substance: PROMETHAZINE HYDROCHLORIDE
     Indication: Allergy prophylaxis
     Dosage: 25 MG, IMMEDIATELY (ST)
     Route: 030
     Dates: start: 20210731, end: 20210731
  15. ONDANSETRON HYDROCHLORIDE [Concomitant]
     Active Substance: ONDANSETRON HYDROCHLORIDE
     Indication: Prophylaxis of nausea and vomiting
     Dosage: 8 MG, 1X/DAY
     Route: 041
     Dates: start: 20210731, end: 20210731
  16. ONDANSETRON HYDROCHLORIDE [Concomitant]
     Active Substance: ONDANSETRON HYDROCHLORIDE
     Indication: Gastrointestinal disorder prophylaxis
  17. LACTATED RINGERS SOLUTION [Concomitant]
     Active Substance: CALCIUM CHLORIDE\POTASSIUM CHLORIDE\SODIUM CHLORIDE\SODIUM LACTATE
     Indication: Nutritional supplementation
     Dosage: 500 ML, 1X/DAY
     Route: 041
     Dates: start: 20210731, end: 20210802
  18. AMINO ACIDS, SOURCE UNSPECIFIED [Concomitant]
     Active Substance: AMINO ACIDS, SOURCE UNSPECIFIED
     Indication: Nutritional supplementation
     Dosage: 250 ML, 1X/DAY
     Route: 041
     Dates: start: 20210731, end: 20210802
  19. DEXAMETHASONE SODIUM PHOSPHATE [Concomitant]
     Active Substance: DEXAMETHASONE SODIUM PHOSPHATE
     Indication: Allergy prophylaxis
     Dosage: 10 MG IMMEDIATELY, INTRAVENOUS BOLUS INJECTION
     Route: 040
     Dates: start: 20210731, end: 20210731
  20. MONTMORILLONITE [Concomitant]
     Active Substance: MONTMORILLONITE
     Indication: Diarrhoea
     Dosage: 2 SACHETS, IMMEDIATELY, POWER
     Route: 048
     Dates: start: 20210801, end: 20210802

REACTIONS (1)
  - Haemoptysis [Recovered/Resolved]

NARRATIVE: CASE EVENT DATE: 20210810
